FAERS Safety Report 6259110-9 (Version None)
Quarter: 2009Q3

REPORT INFORMATION
  Report Type: 
  Country: None (occurrence: None)
  Receive Date: 20090702
  Receipt Date: 20090617
  Transmission Date: 20100115
  Serious: Yes (Death, Hospitalization)
  Sender: FDA-Public Use
  Company Number: 2009AL001749

PATIENT
  Age: 57 Year
  Sex: Female

DRUGS (15)
  1. DIGOXIN [Suspect]
     Indication: ATRIAL FIBRILLATION
     Dosage: 0.125MG, DAILY, PO
     Route: 048
  2. ASCORBIC ACID [Concomitant]
  3. VITAMIN B-12 [Concomitant]
  4. CARDIZEM [Concomitant]
  5. REVATIO [Concomitant]
  6. TIKOSYN [Concomitant]
  7. BENICAR [Concomitant]
  8. TAPERING [Concomitant]
  9. MULTI-VITAMIN [Concomitant]
  10. FOSAMAX [Concomitant]
  11. LASIX [Concomitant]
  12. ADVAIR HFA [Concomitant]
  13. ACIPHEX [Concomitant]
  14. XOPENEX [Concomitant]
  15. DUONEB [Concomitant]

REACTIONS (14)
  - ACUTE MYOCARDIAL INFARCTION [None]
  - ANGER [None]
  - ANHEDONIA [None]
  - ANXIETY [None]
  - ASTHMA [None]
  - ATRIAL FIBRILLATION [None]
  - CARDIAC FAILURE CONGESTIVE [None]
  - CARDIO-RESPIRATORY ARREST [None]
  - CARDIOGENIC SHOCK [None]
  - ECONOMIC PROBLEM [None]
  - INJURY [None]
  - PAIN [None]
  - RESPIRATORY FAILURE [None]
  - UNEVALUABLE EVENT [None]
